FAERS Safety Report 21931971 (Version 1)
Quarter: 2023Q1

REPORT INFORMATION
  Report Type: Spontaneous
  Country: US (occurrence: None)
  Receive Date: 20230131
  Receipt Date: 20230131
  Transmission Date: 20230418
  Serious: No
  Sender: FDA-Public Use
  Company Number: None

PATIENT
  Age: 76 Year
  Sex: Male
  Weight: 98.02 kg

DRUGS (10)
  1. CAPECITABINE [Suspect]
     Active Substance: CAPECITABINE
     Indication: Colon cancer
     Dosage: FREQUENCY : TWICE A DAY;?
     Route: 048
     Dates: start: 202301
  2. DICLOFENAC [Concomitant]
     Active Substance: DICLOFENAC
  3. FUROSEMIDE [Concomitant]
     Active Substance: FUROSEMIDE
  4. LOPERAMIDE [Concomitant]
     Active Substance: LOPERAMIDE
  5. LOTREL [Concomitant]
     Active Substance: AMLODIPINE BESYLATE\BENAZEPRIL HYDROCHLORIDE
  6. METOPROLOL [Concomitant]
     Active Substance: METOPROLOL
  7. ONDANSETRON [Concomitant]
     Active Substance: ONDANSETRON
  8. PAXLOVID [Concomitant]
     Active Substance: NIRMATRELVIR\RITONAVIR
  9. VITAMIN D3 [Concomitant]
     Active Substance: CHOLECALCIFEROL
  10. XARELTO [Concomitant]
     Active Substance: RIVAROXABAN

REACTIONS (1)
  - COVID-19 [None]
